FAERS Safety Report 6410157-9 (Version None)
Quarter: 2009Q4

REPORT INFORMATION
  Report Type: 
  Country: None (occurrence: None)
  Receive Date: 20091022
  Receipt Date: 20091013
  Transmission Date: 20100525
  Serious: Yes (Hospitalization)
  Sender: FDA-Public Use
  Company Number: BE-ROCHE-662385

PATIENT
  Sex: Male

DRUGS (26)
  1. CAPECITABINE [Suspect]
     Indication: GASTROINTESTINAL CARCINOMA
     Route: 048
     Dates: start: 20080506
  2. BLINDED AMG 386 [Suspect]
     Indication: METASTATIC NEOPLASM
     Route: 042
     Dates: start: 20080506
  3. BLINDED AMG 386 [Suspect]
     Route: 042
     Dates: start: 20080624
  4. CISPLATIN [Suspect]
     Indication: GASTROINTESTINAL CARCINOMA
     Route: 042
     Dates: start: 20080506
  5. CONTRAMAL [Concomitant]
     Route: 048
     Dates: start: 20080506
  6. METFORMIN [Concomitant]
     Route: 048
  7. GLIMEPIRIDE [Concomitant]
     Route: 048
  8. MAGNESIUM [Concomitant]
     Route: 048
     Dates: start: 20080513, end: 20080608
  9. NULYTELY [Concomitant]
     Route: 048
     Dates: start: 20080514, end: 20080701
  10. ONDANSETRON HYDROCHLORIDE [Concomitant]
     Route: 042
     Dates: start: 20080506
  11. ARANESP [Concomitant]
     Route: 042
     Dates: start: 20090531, end: 20090531
  12. FUROSEMIDE [Concomitant]
     Route: 042
     Dates: start: 20080530
  13. OMEPRAZOLE [Concomitant]
     Route: 048
     Dates: start: 20080601
  14. SODIUM PICOSULFATE [Concomitant]
     Route: 048
     Dates: start: 20080520, end: 20080605
  15. DURAGESIC-100 [Concomitant]
     Dates: start: 20080606
  16. LACTULOSE [Concomitant]
     Route: 048
     Dates: start: 20080101
  17. ALIZAPRIDE [Concomitant]
     Route: 042
     Dates: start: 20080606, end: 20080701
  18. MORPHINE [Concomitant]
     Route: 058
     Dates: start: 20080606, end: 20080701
  19. ENOXAPARIN SODIUM [Concomitant]
     Route: 058
     Dates: start: 20080606, end: 20080628
  20. OMEPRAZOLE [Concomitant]
     Route: 042
     Dates: start: 20080606
  21. SODIUM PHOSPHATES [Concomitant]
     Route: 054
     Dates: start: 20080611
  22. CHLORHEXIDINE GLUCONATE [Concomitant]
     Route: 048
     Dates: start: 20080606
  23. ALPRAZOLAM [Concomitant]
     Route: 048
     Dates: start: 20080612, end: 20080612
  24. ACETAMINOPHEN [Concomitant]
     Route: 042
     Dates: start: 20080621, end: 20080630
  25. PHYTOMENADIONE [Concomitant]
     Route: 048
     Dates: start: 20080621, end: 20080621
  26. DEXAMETHASONE [Concomitant]
     Route: 042
     Dates: start: 20080506

REACTIONS (3)
  - ASTHENIA [None]
  - HYPOKALAEMIA [None]
  - VOMITING [None]
